FAERS Safety Report 4501202-6 (Version None)
Quarter: 2004Q3

REPORT INFORMATION
  Report Type: 
  Country: None (occurrence: None)
  Receive Date: 20040927
  Receipt Date: 20040813
  Transmission Date: 20050211
  Serious: No
  Sender: FDA-Public Use
  Company Number: USA040875500

PATIENT
  Age: 9 Year
  Sex: Female
  Weight: 34 kg

DRUGS (1)
  1. STRATTERA [Suspect]
     Indication: ATTENTION DEFICIT/HYPERACTIVITY DISORDER
     Dosage: 25 MG/D
     Dates: start: 20040101, end: 20040501

REACTIONS (4)
  - ABDOMINAL PAIN UPPER [None]
  - FEELING ABNORMAL [None]
  - RETCHING [None]
  - SOMNOLENCE [None]
